FAERS Safety Report 10964714 (Version 2)
Quarter: 2015Q2

REPORT INFORMATION
  Report Type: Report from Study
  Country: AU (occurrence: AU)
  Receive Date: 20150330
  Receipt Date: 20150409
  Transmission Date: 20150821
  Serious: Yes (Hospitalization, Other)
  Sender: FDA-Public Use
  Company Number: AU-GILEAD-2015-0143184

PATIENT
  Age: 61 Year
  Sex: Female

DRUGS (15)
  1. GLICLAZIDE [Concomitant]
     Active Substance: GLICLAZIDE
     Dosage: UNK
  2. MYCOPHENOLATE [Concomitant]
     Active Substance: MYCOPHENOLIC ACID
     Dosage: UNK
  3. PANTOPRAZOLE [Concomitant]
     Active Substance: PANTOPRAZOLE SODIUM
     Dosage: UNK
  4. TAZOCIN [Concomitant]
     Active Substance: PIPERACILLIN SODIUM\TAZOBACTAM SODIUM
     Dosage: UNK
  5. BACTRIM [Concomitant]
     Active Substance: SULFAMETHOXAZOLE\TRIMETHOPRIM
     Dosage: UNK
  6. FLUCONAZOLE. [Concomitant]
     Active Substance: FLUCONAZOLE
     Dosage: UNK
  7. TACROLIMUS. [Concomitant]
     Active Substance: TACROLIMUS
     Dosage: UNK
  8. AUGMENTIN [Concomitant]
     Active Substance: AMOXICILLIN\CLAVULANATE POTASSIUM
     Dosage: UNK
  9. VALGANCICLOVIR [Concomitant]
     Active Substance: VALGANCICLOVIR
     Dosage: UNK
  10. METOCLOPRAMIDE. [Concomitant]
     Active Substance: METOCLOPRAMIDE
     Dosage: UNK
  11. NOVOMIX [Concomitant]
     Active Substance: INSULIN ASPART
     Dosage: UNK
  12. CHLORAMPHENICOL [Concomitant]
     Active Substance: CHLORAMPHENICOL
     Dosage: UNK
     Route: 047
  13. SOFOSBUVIR [Suspect]
     Active Substance: SOFOSBUVIR
     Indication: HEPATITIS C
     Dosage: 400 MG, QD
     Route: 048
     Dates: start: 20141123
  14. DACLATASVIR [Suspect]
     Active Substance: DACLATASVIR
     Indication: HEPATITIS C
     Dosage: 60 MG, QD
     Route: 048
     Dates: start: 20141123
  15. MAGMIN                             /01486820/ [Concomitant]
     Dosage: UNK

REACTIONS (5)
  - Nausea [Unknown]
  - Abdominal pain [Unknown]
  - Umbilical hernia perforation [Unknown]
  - Dizziness [Unknown]
  - Pyrexia [Unknown]

NARRATIVE: CASE EVENT DATE: 20150206
